FAERS Safety Report 7283044-4 (Version None)
Quarter: 2011Q1

REPORT INFORMATION
  Report Type: 
  Country: None (occurrence: None)
  Receive Date: 20110204
  Receipt Date: 20110204
  Transmission Date: 20110831
  Serious: Yes (Other)
  Sender: FDA-Public Use
  Company Number: None

PATIENT
  Age: 9 Year
  Sex: Male
  Weight: 19.0511 kg

DRUGS (2)
  1. SINGULAIR [Suspect]
     Indication: ASTHMA
     Dosage: 4MG 1X PER DAY (TOOK 45 PILLS @ 4MG.)
  2. SINGULAIR [Suspect]
     Indication: SINUS DISORDER
     Dosage: 4MG 1X PER DAY (TOOK 45 PILLS @ 4MG.)

REACTIONS (15)
  - ANXIETY [None]
  - DIZZINESS [None]
  - HEADACHE [None]
  - EMOTIONAL DISORDER [None]
  - EAR PAIN [None]
  - TREMOR [None]
  - TIC [None]
  - CONFUSIONAL STATE [None]
  - CONDITION AGGRAVATED [None]
  - ANGER [None]
  - POOR QUALITY SLEEP [None]
  - AGITATION [None]
  - RHINORRHOEA [None]
  - RASH [None]
  - DISTURBANCE IN ATTENTION [None]
